FAERS Safety Report 16821584 (Version 2)
Quarter: 2019Q3

REPORT INFORMATION
  Report Type: Report from Study
  Country: KR (occurrence: KR)
  Receive Date: 20190918
  Receipt Date: 20190930
  Transmission Date: 20191005
  Serious: Yes (Hospitalization)
  Sender: FDA-Public Use
  Company Number: KR-ROCHE-2403581

PATIENT
  Age: 55 Year
  Sex: Male
  Weight: 67.1 kg

DRUGS (6)
  1. BARACLUDE [Concomitant]
     Active Substance: ENTECAVIR
     Indication: HEPATITIS B
     Route: 048
     Dates: start: 20180419
  2. JANUVIA [Concomitant]
     Active Substance: SITAGLIPTIN PHOSPHATE
     Indication: DIABETES MELLITUS
     Route: 048
     Dates: start: 20180425
  3. BEVACIZUMAB. [Suspect]
     Active Substance: BEVACIZUMAB
     Indication: NEOPLASM
     Dosage: ON 16/AUG/2019, HE RECEIVED THE MOST RECENT DOSE (15 MG/KG) OF BEVACIZUMAB PRIOR TO AE (ADVERSE EVEN
     Route: 042
     Dates: start: 20190227
  4. ALPRAZOLAM. [Concomitant]
     Active Substance: ALPRAZOLAM
     Indication: INSOMNIA
     Dosage: 0.125
     Route: 048
     Dates: start: 20180122
  5. ATEZOLIZUMAB. [Suspect]
     Active Substance: ATEZOLIZUMAB
     Indication: NEOPLASM
     Dosage: ON 16/AUG/2019, HE RECEIVED THE MOST RECENT DOSE (1200 MG) OF ATEZOLIZUMAB PRIOR TO AE (ADVERSE EVEN
     Route: 042
     Dates: start: 20180813
  6. INDENOL [Concomitant]
     Active Substance: PROPRANOLOL HYDROCHLORIDE
     Indication: VARICES OESOPHAGEAL
     Route: 048
     Dates: start: 20190403

REACTIONS (1)
  - Bleeding varicose vein [Recovered/Resolved]

NARRATIVE: CASE EVENT DATE: 20190901
